FAERS Safety Report 9805680 (Version 1)
Quarter: 2014Q1

REPORT INFORMATION
  Report Type: Spontaneous
  Country: US (occurrence: None)
  Receive Date: 20140107
  Receipt Date: 20140107
  Transmission Date: 20141002
  Serious: Yes (Death)
  Sender: FDA-Public Use
  Company Number: 2013P1022309

PATIENT
  Age: 51 Year
  Sex: Male

DRUGS (3)
  1. FENTANYL [Suspect]
     Dosage: TDER
  2. OXYCODONE [Suspect]
  3. DESIPRAMINE [Suspect]

REACTIONS (1)
  - Death [None]
